FAERS Safety Report 24712067 (Version 4)
Quarter: 2025Q1

REPORT INFORMATION
  Report Type: Report from Study
  Country: CO (occurrence: CO)
  Receive Date: 20241209
  Receipt Date: 20250305
  Transmission Date: 20250409
  Serious: Yes (Death, Life-Threatening, Hospitalization, Disabling, Other)
  Sender: AMGEN
  Company Number: CO-AMGEN-COLSL2024237946

PATIENT
  Age: 53 Year
  Sex: Male

DRUGS (1)
  1. VECTIBIX [Suspect]
     Active Substance: PANITUMUMAB
     Indication: Colorectal cancer metastatic
     Dosage: 100 MILLIGRAM, Q2WK, BIWEEKLY
     Route: 040
     Dates: start: 20240917, end: 20250115

REACTIONS (4)
  - Death [Fatal]
  - Pain [Not Recovered/Not Resolved]
  - Post procedural complication [Recovering/Resolving]
  - Skin disorder [Unknown]

NARRATIVE: CASE EVENT DATE: 20240101
